FAERS Safety Report 16307535 (Version 2)
Quarter: 2019Q2

REPORT INFORMATION
  Report Type: Spontaneous
  Country: MX (occurrence: MX)
  Receive Date: 20190514
  Receipt Date: 20190520
  Transmission Date: 20190711
  Serious: Yes (Other)
  Sender: FDA-Public Use
  Company Number: MX-AMGEN-MEXSP2019074168

PATIENT
  Age: 31 Year

DRUGS (3)
  1. VITAMIN D [Concomitant]
     Active Substance: VITAMIN D NOS
     Dosage: 600 UNIT, QD
  2. PROLIA [Suspect]
     Active Substance: DENOSUMAB
     Indication: OSTEOPOROSIS
     Dosage: 60 UNK
     Route: 065
     Dates: start: 201703
  3. CALCIUM [Concomitant]
     Active Substance: CALCIUM
     Dosage: 1600 UNIT, QD

REACTIONS (2)
  - Seizure [Unknown]
  - Fracture [Unknown]

NARRATIVE: CASE EVENT DATE: 201803
